FAERS Safety Report 4325438-2 (Version None)
Quarter: 2004Q1

REPORT INFORMATION
  Report Type: 
  Country: None (occurrence: None)
  Receive Date: 20040324
  Receipt Date: 20040318
  Transmission Date: 20041129
  Serious: Yes (Hospitalization)
  Sender: FDA-Public Use
  Company Number: STA-AE-04-MTX-106

PATIENT
  Age: 66 Year
  Sex: Female

DRUGS (6)
  1. METHOTREXATE [Suspect]
     Indication: RHEUMATOID ARTHRITIS
     Dosage: 20 MG 1X PER 1 WK, ORAL
     Route: 048
     Dates: start: 20020312, end: 20030723
  2. ENBREL [Suspect]
     Indication: RHEUMATOID ARTHRITIS
     Dosage: 25 MG 2X PER 1 WK, SC
     Route: 058
     Dates: start: 20030103, end: 20030324
  3. HUMIRA [Suspect]
     Dosage: 40 MG 2X PER 1 MTH, SC
     Route: 058
     Dates: start: 20030324, end: 20030701
  4. ACIPHEX [Concomitant]
  5. ATENOLOL [Concomitant]
  6. PREDNISONE [Concomitant]

REACTIONS (9)
  - CHEST WALL PAIN [None]
  - CONDITION AGGRAVATED [None]
  - CRYPTOCOCCOSIS [None]
  - HYPERSENSITIVITY [None]
  - LUNG INFECTION [None]
  - POST PROCEDURAL PAIN [None]
  - PULMONARY MASS [None]
  - RASH [None]
  - RHEUMATOID ARTHRITIS [None]
